FAERS Safety Report 14336281 (Version 1)
Quarter: 2017Q4

REPORT INFORMATION
  Report Type: Spontaneous
  Country: IN (occurrence: IN)
  Receive Date: 20171229
  Receipt Date: 20171229
  Transmission Date: 20180321
  Serious: Yes (Hospitalization, Other)
  Sender: FDA-Public Use
  Company Number: IN-TORRENT-00001522

PATIENT
  Age: 15 Year
  Sex: Male

DRUGS (5)
  1. LITHIUM. [Suspect]
     Active Substance: LITHIUM
     Indication: BIPOLAR DISORDER
  2. TRIHEXYPHENIDYL [Suspect]
     Active Substance: TRIHEXYPHENIDYL
     Indication: BIPOLAR DISORDER
  3. OLANZAPINE. [Suspect]
     Active Substance: OLANZAPINE
     Indication: BIPOLAR DISORDER
  4. LORAZEPAM. [Suspect]
     Active Substance: LORAZEPAM
     Indication: BIPOLAR DISORDER
  5. SERTRALINE HYDROCHLORIDE. [Suspect]
     Active Substance: SERTRALINE HYDROCHLORIDE
     Indication: BIPOLAR DISORDER
     Dosage: UNSPECIFIED

REACTIONS (12)
  - Posturing [Recovering/Resolving]
  - Blunted affect [Recovering/Resolving]
  - Drug ineffective [Unknown]
  - Echolalia [Recovering/Resolving]
  - Mutism [Recovering/Resolving]
  - Echopraxia [Recovering/Resolving]
  - Parkinsonian rest tremor [Recovering/Resolving]
  - Salivary hypersecretion [Recovering/Resolving]
  - Extrapyramidal disorder [Recovering/Resolving]
  - Negativism [Recovering/Resolving]
  - Waxy flexibility [Recovering/Resolving]
  - Hypokinesia [Recovering/Resolving]
